FAERS Safety Report 13726133 (Version 1)
Quarter: 2017Q3

REPORT INFORMATION
  Report Type: Spontaneous
  Country: FR (occurrence: FR)
  Receive Date: 20170707
  Receipt Date: 20170707
  Transmission Date: 20171127
  Serious: Yes (Hospitalization)
  Sender: FDA-Public Use
  Company Number: FR-JNJFOC-20170702639

PATIENT
  Age: 36 Year
  Sex: Female

DRUGS (5)
  1. FLUOXETINE [Concomitant]
     Active Substance: FLUOXETINE HYDROCHLORIDE
     Dosage: 1 IN THE MORNING
     Route: 065
  2. RISPERDAL [Suspect]
     Active Substance: RISPERIDONE
     Indication: SCHIZOPHRENIA
     Dosage: ONE IN THE MORNING AND ONE IN EVENING
     Route: 065
  3. DEPAMIDE [Suspect]
     Active Substance: VALPROMIDE
     Indication: SCHIZOPHRENIA
     Dosage: 1 MORNING AND EVENING
     Route: 065
  4. SERESTA [Suspect]
     Active Substance: OXAZEPAM
     Indication: SCHIZOPHRENIA
     Dosage: TOTAL OF 150 MG IN A DAY
     Route: 065
  5. LOXAPAC [Concomitant]
     Active Substance: LOXAPINE SUCCINATE
     Dosage: IN THE MORNING
     Route: 065

REACTIONS (4)
  - Hypertension [Recovered/Resolved]
  - Tachycardia [Recovered/Resolved]
  - Drug abuser [Not Recovered/Not Resolved]
  - Bradyphrenia [Recovered/Resolved]

NARRATIVE: CASE EVENT DATE: 2017
